FAERS Safety Report 8605747-9 (Version None)
Quarter: 2012Q3

REPORT INFORMATION
  Report Type: 
  Country: None (occurrence: None)
  Receive Date: 20120820
  Receipt Date: 20120809
  Transmission Date: 20120928
  Serious: Yes (Other)
  Sender: FDA-Public Use
  Company Number: US-ASTRAZENECA-2011SE59258

PATIENT
  Age: 74 Year
  Sex: Female

DRUGS (4)
  1. PULMICORT [Suspect]
     Dosage: GENERIC
     Route: 055
  2. PREDNISONE TAB [Concomitant]
  3. PULMICORT [Suspect]
     Route: 055
  4. PULMICORT [Suspect]
     Route: 055

REACTIONS (7)
  - ASTHMA [None]
  - DYSPNOEA [None]
  - MALAISE [None]
  - FEELING ABNORMAL [None]
  - PULMONARY FUNCTION TEST DECREASED [None]
  - OFF LABEL USE [None]
  - DRUG DOSE OMISSION [None]
